FAERS Safety Report 8351557-X (Version None)
Quarter: 2012Q2

REPORT INFORMATION
  Report Type: 
  Country: None (occurrence: None)
  Receive Date: 20120511
  Receipt Date: 20120503
  Transmission Date: 20120825
  Serious: Yes (Hospitalization)
  Sender: FDA-Public Use
  Company Number: DE-BIOGENIDEC-2012BI015395

PATIENT
  Age: 30 Year
  Sex: Male
  Weight: 70 kg

DRUGS (5)
  1. TYSABRI [Suspect]
     Indication: RELAPSING-REMITTING MULTIPLE SCLEROSIS
     Route: 042
     Dates: start: 20060901, end: 20120316
  2. FLUOXETINE [Concomitant]
     Indication: DEPRESSION
     Dates: end: 20120201
  3. OPIPRAMOL [Concomitant]
     Indication: DEPRESSION
     Dates: end: 20120201
  4. FLUOXETINE [Concomitant]
     Dates: start: 20120201
  5. OPIPRAMOL [Concomitant]
     Dates: start: 20120201

REACTIONS (2)
  - INFECTION [None]
  - PROGRESSIVE MULTIFOCAL LEUKOENCEPHALOPATHY [None]
